FAERS Safety Report 8319641-4 (Version None)
Quarter: 2012Q2

REPORT INFORMATION
  Report Type: 
  Country: None (occurrence: None)
  Receive Date: 20120427
  Receipt Date: 20120426
  Transmission Date: 20120825
  Serious: Yes (Life-Threatening, Hospitalization, Other)
  Sender: FDA-Public Use
  Company Number: PHHO2012DE006099

PATIENT
  Sex: Female
  Weight: 66 kg

DRUGS (6)
  1. OMEPRAZOLE [Concomitant]
     Indication: PROPHYLAXIS
     Dosage: 20 MG, QD
     Route: 048
     Dates: start: 20090101
  2. TASIGNA [Suspect]
     Dosage: 600 MG, BID
     Route: 048
     Dates: start: 20120425
  3. NEBIVOLOL HCL [Concomitant]
     Indication: HYPERTENSION
     Dosage: 2.5 MG, QD
     Route: 048
     Dates: start: 20030101
  4. SIMVASTATIN [Concomitant]
     Indication: HYPERCHOLESTEROLAEMIA
     Dosage: 20 MG, QD
     Route: 048
     Dates: start: 20090101
  5. TASIGNA [Suspect]
     Indication: CHRONIC MYELOID LEUKAEMIA
     Dosage: 600 MG, BID
     Route: 048
     Dates: start: 20110117, end: 20120415
  6. LATANOPROST [Concomitant]
     Indication: GLAUCOMA
     Dosage: ONCE A DAY
     Dates: start: 20080101

REACTIONS (2)
  - BARTTER'S SYNDROME [None]
  - VOMITING [None]
